FAERS Safety Report 8858888 (Version 2)
Quarter: 2012Q4

REPORT INFORMATION
  Report Type: Spontaneous
  Country: US (occurrence: None)
  Receive Date: 20121019
  Receipt Date: 20121026
  Transmission Date: 20130627
  Serious: Yes (Death, Hospitalization)
  Sender: FDA-Public Use
  Company Number: 2012-1070

PATIENT
  Age: 72 Year
  Sex: Male

DRUGS (20)
  1. KYPROLIS [Suspect]
     Indication: MULTIPLE MYELOMA
     Route: 042
     Dates: start: 20120911, end: 20120926
  2. DEXAMETHASONE (DEXAMETHASONE) (DEXAMETHASONE) [Concomitant]
  3. KYTRIL (GANISETRON HYDROCHLORIDE) (GRANISETRON HYDROCHLORIDE) [Concomitant]
  4. VITAMINS (VITAMINS NOS) (VITAMINS NOS) [Concomitant]
  5. OXYCONTIN (OXYCODONE HYDROCHLORIDE) (OXYODONE HYDROCHLORIDE) [Concomitant]
  6. LIDODERM (LIDOCAINE) (POULTICE OR PATCH) (LIDOCAINE) [Concomitant]
  7. IMODIUM (LOPERAMIDE HYDROCHLORIDE) (LOPERAMIDE HYDROCHLORIDE) [Concomitant]
  8. FLORASTOR (SACCHAROMYCES BOULARDII) (SACCHAROMYCES BOULARDII) [Concomitant]
  9. ZOFRAN (ONDANSETRON) (ONDANSETRON) [Concomitant]
  10. SIMVASTATIN (SIMVASTATIN) (SIMVASTATIN) [Concomitant]
  11. PREDNISONE (PREDNISONE) (PREDNISONE) [Concomitant]
  12. NEUPOGEN [Concomitant]
  13. METOPROLOL (METOPROLOL) (METOPROLOL) [Concomitant]
  14. LYRICA (PREGABALIN) (PREGABALIN) [Concomitant]
  15. ATIVAN (LORAZEPAM) (LORAZEPAM) [Concomitant]
  16. LOMOTIL (ATROPINE SULFATE) (ATROPINE SULFATE) [Concomitant]
  17. DIFLUCAN (FLUCONAZOLE) (FLUCONAZOLE) [Concomitant]
  18. POTASSIUM (POTASSIUM) (POTASSIUM) [Concomitant]
  19. AUGMENTIN (AMOXICILLIN SODIUM) (AMOXICILLIN SODIUM) [Concomitant]
  20. CIPRO (CIPROFLOXACIN) (CIPROFLOXACIN) [Concomitant]

REACTIONS (12)
  - Diarrhoea [None]
  - Mental status changes [None]
  - Thrombocytopenia [None]
  - Anaemia [None]
  - Asthenia [None]
  - Dehydration [None]
  - Coma [None]
  - Hepatic steatosis [None]
  - Hepatic encephalopathy [None]
  - Acute hepatic failure [None]
  - Confusional state [None]
  - Cerebral small vessel ischaemic disease [None]
